FAERS Safety Report 6034757-3 (Version None)
Quarter: 2009Q1

REPORT INFORMATION
  Report Type: 
  Country: None (occurrence: None)
  Receive Date: 20090109
  Receipt Date: 20090109
  Transmission Date: 20090719
  Serious: Yes (Hospitalization)
  Sender: FDA-Public Use
  Company Number: None

PATIENT
  Age: 67 Year
  Sex: Female
  Weight: 70.3075 kg

DRUGS (1)
  1. CLONIDINE [Suspect]
     Indication: HYPERTENSION
     Dosage: BID
     Dates: start: 20020110, end: 20020118

REACTIONS (3)
  - HYPERTENSIVE CRISIS [None]
  - STENT PLACEMENT [None]
  - VOMITING [None]
